FAERS Safety Report 10098299 (Version 2)
Quarter: 2014Q2

REPORT INFORMATION
  Report Type: Report from Study
  Country: CA (occurrence: CA)
  Receive Date: 20140423
  Receipt Date: 20140428
  Transmission Date: 20141212
  Serious: Yes (Other)
  Sender: FDA-Public Use
  Company Number: CA-ROCHE-1382613

PATIENT
  Age: 71 Year
  Sex: Male
  Weight: 84.2 kg

DRUGS (26)
  1. OBINUTUZUMAB [Suspect]
     Indication: CHRONIC LYMPHOCYTIC LEUKAEMIA
     Route: 042
     Dates: start: 20140409, end: 20140409
  2. CHLORAMBUCIL [Suspect]
     Indication: CHRONIC LYMPHOCYTIC LEUKAEMIA
     Route: 048
     Dates: start: 20140409, end: 20140409
  3. GRAVOL [Concomitant]
     Route: 048
     Dates: start: 20140331
  4. ZOPICLONE [Concomitant]
     Indication: INSOMNIA
     Route: 048
     Dates: start: 20140331
  5. PLAVIX [Concomitant]
     Indication: PROPHYLAXIS
     Route: 048
     Dates: start: 20140331
  6. PLAVIX [Concomitant]
     Indication: THALAMIC INFARCTION
  7. PLAVIX [Concomitant]
     Indication: HYPERTONIA
  8. CRESTOR [Concomitant]
     Indication: DYSLIPIDAEMIA
     Route: 048
     Dates: start: 20140331
  9. ACEBUTOLOL [Concomitant]
     Indication: HYPERTENSION
     Route: 048
     Dates: start: 20140331
  10. ENALAPRIL [Concomitant]
     Indication: HYPERTENSION
     Route: 048
     Dates: start: 20140331
  11. AMLODIPINE [Concomitant]
     Indication: HYPERTENSION
     Route: 048
     Dates: start: 20140331
  12. METFORMIN [Concomitant]
     Indication: TYPE 2 DIABETES MELLITUS
     Route: 048
     Dates: start: 20140331
  13. NOVOLIN GE 50/50 [Concomitant]
     Indication: TYPE 2 DIABETES MELLITUS
     Dosage: 30 UNITS
     Route: 058
     Dates: start: 20140331
  14. NOVOLIN GE TORONTO [Concomitant]
     Indication: TYPE 2 DIABETES MELLITUS
     Dosage: 18 UNITS
     Route: 058
     Dates: start: 20140331
  15. TRAZODONE [Concomitant]
     Indication: INSOMNIA
     Route: 048
     Dates: start: 20140331
  16. ELAVIL (CANADA) [Concomitant]
     Indication: ANXIETY
     Route: 048
     Dates: start: 20140331
  17. FERAMAX [Concomitant]
     Indication: IRON DEFICIENCY
     Route: 048
     Dates: start: 20140331
  18. RABEPRAZOLE [Concomitant]
     Indication: GASTROOESOPHAGEAL REFLUX DISEASE
     Route: 048
     Dates: start: 20140331
  19. VITAMIN B12 [Concomitant]
     Route: 048
     Dates: start: 20140331
  20. OMEGA 3 [Concomitant]
     Route: 048
     Dates: start: 20140331
  21. TYLENOL #3 (CANADA) [Concomitant]
     Indication: ABDOMINAL PAIN
     Route: 048
     Dates: start: 20140331, end: 20140408
  22. ALLOPURINOL [Concomitant]
     Indication: PROPHYLAXIS
     Route: 048
     Dates: start: 20140407
  23. ZOFRAN [Concomitant]
     Indication: PROPHYLAXIS
     Dosage: SINGLE DOSE
     Route: 048
     Dates: start: 20140409, end: 20140409
  24. DILAUDID [Concomitant]
     Indication: ABDOMINAL PAIN
     Route: 048
     Dates: start: 20140408
  25. TYLENOL [Concomitant]
     Indication: ABDOMINAL PAIN
     Route: 048
     Dates: start: 20140409, end: 20140409
  26. TYLENOL [Concomitant]
     Route: 048
     Dates: start: 20140331, end: 20140408

REACTIONS (1)
  - Muscle spasticity [Recovered/Resolved]
